FAERS Safety Report 6376019-0 (Version None)
Quarter: 2009Q3

REPORT INFORMATION
  Report Type: 
  Country: None (occurrence: None)
  Receive Date: 20090924
  Receipt Date: 20090914
  Transmission Date: 20100115
  Serious: Yes (Hospitalization)
  Sender: FDA-Public Use
  Company Number: PHHO2009HU11324

PATIENT
  Sex: Female
  Weight: 95 kg

DRUGS (4)
  1. RAD 666 RAD+TAB [Suspect]
     Indication: METASTATIC RENAL CELL CARCINOMA
     Dosage: 10MG/DAY
     Route: 048
     Dates: start: 20090714, end: 20090905
  2. METFORMIN [Concomitant]
     Indication: DIABETES MELLITUS
  3. CAPTOPRIL [Concomitant]
     Indication: HYPERTENSION
  4. AMLODIPINE [Concomitant]
     Indication: HYPERTENSION

REACTIONS (2)
  - COUGH [None]
  - LUNG INFILTRATION [None]
